FAERS Safety Report 5506863-0 (Version None)
Quarter: 2007Q4

REPORT INFORMATION
  Report Type: 
  Country: None (occurrence: None)
  Receive Date: 20071105
  Receipt Date: 20071031
  Transmission Date: 20080405
  Serious: Yes (Death)
  Sender: FDA-Public Use
  Company Number: US-JNJFOC-20071000433

PATIENT
  Sex: Male
  Weight: 82 kg

DRUGS (30)
  1. LEVAQUIN [Suspect]
     Indication: DRUG USE FOR UNKNOWN INDICATION
     Route: 042
  2. PROTONIX [Concomitant]
     Route: 042
  3. INSULIN [Concomitant]
     Route: 058
  4. TYLENOL (CAPLET) [Concomitant]
     Indication: PAIN
     Route: 048
  5. NORCO [Concomitant]
     Indication: PAIN
     Route: 048
  6. LEVOPHED [Concomitant]
     Route: 065
  7. MORPHINE [Concomitant]
     Route: 042
  8. LASIX [Concomitant]
     Route: 042
  9. PLAVIX [Concomitant]
     Route: 048
  10. METFORMIN [Concomitant]
     Route: 048
  11. VANCOMYCIN [Concomitant]
     Route: 042
  12. FORTAZ [Concomitant]
     Route: 048
  13. NEUPOGEN [Concomitant]
     Route: 058
  14. COLACE [Concomitant]
     Route: 048
  15. LANTUS [Concomitant]
     Route: 058
  16. ROCEPHIN [Concomitant]
     Route: 042
  17. ROCEPHIN [Concomitant]
     Route: 042
  18. MAGNESIUM SULFATE [Concomitant]
     Route: 042
  19. ZOFRAN [Concomitant]
     Indication: VOMITING
     Route: 042
  20. ZOFRAN [Concomitant]
     Indication: NAUSEA
     Route: 042
  21. COMPAZINE [Concomitant]
     Route: 042
  22. HUMULIN R [Concomitant]
     Route: 065
  23. LOMOTIL [Concomitant]
     Route: 048
  24. MULITVITAMIN [Concomitant]
     Route: 048
  25. ATROVENT [Concomitant]
     Route: 055
  26. PREVACID [Concomitant]
     Route: 048
  27. CALCITRIOL [Concomitant]
     Route: 048
  28. MIDRODRINE [Concomitant]
     Route: 065
  29. VICODIN [Concomitant]
     Route: 048
  30. ZOSYN [Concomitant]
     Route: 042

REACTIONS (2)
  - CRYSTAL URINE PRESENT [None]
  - DEATH [None]
